FAERS Safety Report 4370993-X (Version None)
Quarter: 2004Q2

REPORT INFORMATION
  Report Type: 
  Country: None (occurrence: None)
  Receive Date: 20040601
  Receipt Date: 20040518
  Transmission Date: 20050107
  Serious: Yes (Death)
  Sender: FDA-Public Use
  Company Number: 200409065

PATIENT
  Age: 75 Year
  Sex: Male

DRUGS (4)
  1. STREPTASE (STREPTOKINASE) (AVENTIS BEHRING) [Suspect]
     Indication: MYOCARDIAL INFARCTION
     Dosage: 1.5 MIU DAILY IV
     Route: 042
     Dates: start: 20040504, end: 20040504
  2. ASPIRIN [Suspect]
     Indication: MYOCARDIAL INFARCTION
     Dosage: 250 MG DAILY PO
     Route: 048
     Dates: start: 20040504, end: 20040504
  3. ENOXAPARIN OR PLACEBO VS. HEPARIN OR PLACEBO [Suspect]
     Indication: MYOCARDIAL INFARCTION
     Dosage: IV
     Route: 042
     Dates: start: 20040504, end: 20040504
  4. NALBUPHIN [Concomitant]

REACTIONS (3)
  - APNOEA [None]
  - CARDIAC ARREST [None]
  - CARDIAC FAILURE [None]
